FAERS Safety Report 6068265-0 (Version None)
Quarter: 2009Q1

REPORT INFORMATION
  Report Type: 
  Country: None (occurrence: None)
  Receive Date: 20090206
  Receipt Date: 20090127
  Transmission Date: 20090719
  Serious: Yes (Hospitalization)
  Sender: FDA-Public Use
  Company Number: PHHY2009IT03305

PATIENT
  Sex: Female

DRUGS (4)
  1. TEGRETOL [Suspect]
     Indication: EPILEPSY
     Dosage: 400 MG, UNK
     Route: 048
     Dates: start: 20080731, end: 20090109
  2. OXYBUTYNIN CHLORIDE [Concomitant]
     Dosage: 3 DF, UNK
  3. KEPPRA [Concomitant]
     Dosage: 2500 MG
     Route: 048
  4. TRIATEC [Concomitant]
     Dosage: 1 DF, UNK
     Route: 048

REACTIONS (1)
  - HYPONATRAEMIA [None]
